FAERS Safety Report 16980264 (Version 2)
Quarter: 2020Q1

REPORT INFORMATION
  Report Type: Spontaneous
  Country: US (occurrence: US)
  Receive Date: 20191031
  Receipt Date: 20200327
  Transmission Date: 20200409
  Serious: No
  Sender: FDA-Public Use
  Company Number: US-ASTRAZENECA-2019SF43175

PATIENT
  Sex: Female
  Weight: 49 kg

DRUGS (2)
  1. TAGRISSO [Suspect]
     Active Substance: OSIMERTINIB
     Route: 048
  2. TAGRISSO [Suspect]
     Active Substance: OSIMERTINIB
     Dosage: 80 MG FOR 2 WEEKS
     Route: 048
     Dates: start: 201907

REACTIONS (10)
  - Drug intolerance [Unknown]
  - Incorrect dose administered [Unknown]
  - Oropharyngeal pain [Unknown]
  - Stomatitis [Unknown]
  - Onychoclasis [Unknown]
  - Anxiety [Unknown]
  - Diarrhoea [Unknown]
  - Frustration tolerance decreased [Unknown]
  - Myalgia [Not Recovered/Not Resolved]
  - Feeding disorder [Unknown]
